FAERS Safety Report 5082922-4 (Version None)
Quarter: 2006Q3

REPORT INFORMATION
  Report Type: 
  Country: None (occurrence: None)
  Receive Date: 20060817
  Receipt Date: 20060530
  Transmission Date: 20061208
  Serious: Yes (Hospitalization)
  Sender: FDA-Public Use
  Company Number: NL-MERCK-0605NLD00034

PATIENT
  Age: 77 Year
  Sex: Male

DRUGS (1)
  1. ZOCOR [Suspect]
     Route: 048
     Dates: start: 20060301, end: 20060401

REACTIONS (2)
  - CERVICAL MYELOPATHY [None]
  - SPINAL COLUMN STENOSIS [None]
